FAERS Safety Report 5485282-X (Version None)
Quarter: 2007Q4

REPORT INFORMATION
  Report Type: 
  Country: None (occurrence: None)
  Receive Date: 20071015
  Receipt Date: 20071009
  Transmission Date: 20080405
  Serious: Yes (Hospitalization)
  Sender: FDA-Public Use
  Company Number: US-AVENTIS-200716355US

PATIENT
  Sex: Female

DRUGS (8)
  1. LOVENOX [Suspect]
     Route: 051
     Dates: start: 20070608, end: 20070601
  2. LOVENOX [Suspect]
     Route: 051
     Dates: start: 20070601, end: 20070601
  3. LOVENOX [Suspect]
     Route: 051
     Dates: start: 20070608, end: 20070601
  4. LOVENOX [Suspect]
     Route: 051
     Dates: start: 20070608, end: 20070601
  5. LOVENOX [Suspect]
     Route: 051
     Dates: start: 20070601, end: 20070601
  6. LOVENOX [Suspect]
     Route: 051
     Dates: start: 20070608, end: 20070601
  7. COUMADIN [Concomitant]
     Dosage: DOSE: UNK
     Dates: start: 20070608
  8. ULTRAM [Concomitant]
     Dosage: DOSE: UNK

REACTIONS (13)
  - ARTHRITIS INFECTIVE [None]
  - ARTHROPATHY [None]
  - CHEST DISCOMFORT [None]
  - CHEST PAIN [None]
  - ERYTHEMA [None]
  - FALL [None]
  - INCISION SITE HAEMORRHAGE [None]
  - JOINT STIFFNESS [None]
  - PALPITATIONS [None]
  - PURULENT DISCHARGE [None]
  - SEPTIC ARTHRITIS STAPHYLOCOCCAL [None]
  - SKIN DISCOLOURATION [None]
  - SWELLING [None]
